FAERS Safety Report 4634887-4 (Version None)
Quarter: 2005Q2

REPORT INFORMATION
  Report Type: 
  Country: None (occurrence: None)
  Receive Date: 20050412
  Receipt Date: 20050404
  Transmission Date: 20051028
  Serious: Yes (Hospitalization)
  Sender: FDA-Public Use
  Company Number: 2005CG00020

PATIENT
  Age: 64 Year
  Sex: Female
  Weight: 60 kg

DRUGS (1)
  1. IRESSA [Suspect]
     Indication: BRONCHIAL CARCINOMA
     Dates: start: 20040715

REACTIONS (2)
  - CONVULSION [None]
  - METASTASES TO CENTRAL NERVOUS SYSTEM [None]
